FAERS Safety Report 19065640 (Version 1)
Quarter: 2021Q1

REPORT INFORMATION
  Report Type: Spontaneous
  Country: ES (occurrence: ES)
  Receive Date: 20210327
  Receipt Date: 20210327
  Transmission Date: 20210420
  Serious: Yes (Other)
  Sender: FDA-Public Use
  Company Number: ES-ACCORD-220860

PATIENT
  Age: 55 Year
  Sex: Female
  Weight: 42 kg

DRUGS (2)
  1. CLEXANE [Suspect]
     Active Substance: ENOXAPARIN SODIUM
     Indication: VENOUS THROMBOSIS
     Dosage: 60 MG EVERY 24H
     Route: 058
     Dates: start: 20200908, end: 20200911
  2. ALLOPURINOL. [Suspect]
     Active Substance: ALLOPURINOL
     Indication: NON-HODGKIN^S LYMPHOMA
     Dosage: 300 MG EVERY 24H
     Route: 048
     Dates: start: 20200811, end: 20200914

REACTIONS (2)
  - Off label use [Unknown]
  - Acute generalised exanthematous pustulosis [Recovered/Resolved]

NARRATIVE: CASE EVENT DATE: 20200910
